FAERS Safety Report 4852230-2 (Version None)
Quarter: 2005Q4

REPORT INFORMATION
  Report Type: 
  Country: None (occurrence: None)
  Receive Date: 20051123
  Receipt Date: 20050510
  Transmission Date: 20060501
  Serious: Yes (Hospitalization)
  Sender: FDA-Public Use
  Company Number: US-JNJFOC-20050503124

PATIENT
  Age: 50 Year
  Sex: Male

DRUGS (2)
  1. LEVAQUIN [Suspect]
     Indication: NEPHROLITHIASIS
     Dosage: 750 MG, INTRAVENOUS
     Route: 042
     Dates: start: 20050401
  2. LEVAQUIN [Suspect]
     Indication: NEPHROLITHIASIS
     Dosage: ORAL
     Route: 048
     Dates: start: 20050401

REACTIONS (1)
  - TENDONITIS [None]
